FAERS Safety Report 14375611 (Version 15)
Quarter: 2019Q2

REPORT INFORMATION
  Report Type: Spontaneous
  Country: US (occurrence: US)
  Receive Date: 20180111
  Receipt Date: 20190429
  Transmission Date: 20190711
  Serious: Yes (Other)
  Sender: FDA-Public Use
  Company Number: US-PFIZER INC-2018011763

PATIENT
  Age: 65 Year
  Sex: Female
  Weight: 59 kg

DRUGS (9)
  1. IBRANCE [Suspect]
     Active Substance: PALBOCICLIB
     Indication: BREAST CANCER METASTATIC
     Dosage: 75 MG, ONCE A DAY
     Route: 048
     Dates: start: 201712, end: 2018
  2. IBRANCE [Suspect]
     Active Substance: PALBOCICLIB
     Dosage: 75 MG, CYCLIC (TAKES FOR 21 DAYS AND THEN HAS 7 DAYS OFF)
     Dates: start: 201803
  3. LETROZOLE. [Concomitant]
     Active Substance: LETROZOLE
     Indication: BREAST CANCER FEMALE
     Dosage: 2.5 MG, 1X/DAY
     Route: 048
  4. LOSARTAN. [Concomitant]
     Active Substance: LOSARTAN
     Indication: HYPERTENSION
     Dosage: 25 MG, 1X/DAY
     Route: 048
  5. ATORVASTATIN [Concomitant]
     Active Substance: ATORVASTATIN
     Indication: BLOOD CHOLESTEROL ABNORMAL
     Dosage: 10 MG, 1X/DAY
     Route: 048
     Dates: start: 2004
  6. IBRANCE [Suspect]
     Active Substance: PALBOCICLIB
     Dosage: 75 MG, CYCLIC (1 CAPSULE TAKEN BY MOUTH DAILY FOR 21 DAYS ON AND THEN 7 DAYS OFF-REPEATING CYCLE)
     Route: 048
     Dates: end: 2018
  7. LETROZOLE. [Concomitant]
     Active Substance: LETROZOLE
     Dosage: 2.5 MG, 1X/DAY
     Route: 048
  8. IBRANCE [Suspect]
     Active Substance: PALBOCICLIB
     Dosage: 75 MG, CYCLIC (DAILY 21 DAYS EVERY 28 DAYS)
     Route: 048
     Dates: start: 20180106
  9. LOSARTAN. [Concomitant]
     Active Substance: LOSARTAN
     Dosage: 20 MG, 1X/DAY
     Route: 048
     Dates: start: 2004

REACTIONS (12)
  - Depression [Unknown]
  - Alopecia [Recovering/Resolving]
  - Nausea [Unknown]
  - Abnormal behaviour [Unknown]
  - Contusion [Not Recovered/Not Resolved]
  - White blood cell count decreased [Unknown]
  - Malaise [Unknown]
  - Full blood count decreased [Recovering/Resolving]
  - Abdominal pain upper [Unknown]
  - Sedation [Unknown]
  - Hypoaesthesia [Unknown]
  - Nervousness [Unknown]

NARRATIVE: CASE EVENT DATE: 2018
